FAERS Safety Report 10221548 (Version 3)
Quarter: 2014Q3

REPORT INFORMATION
  Report Type: Spontaneous
  Country: JP (occurrence: JP)
  Receive Date: 20140606
  Receipt Date: 20140701
  Transmission Date: 20150326
  Serious: Yes (Other)
  Sender: FDA-Public Use
  Company Number: JP-JNJFOC-20140600996

PATIENT
  Age: 74 Year
  Sex: Female

DRUGS (8)
  1. LYRICA [Concomitant]
     Active Substance: PREGABALIN
     Dosage: ONCE A DAY
     Route: 048
  2. COMTAN [Concomitant]
     Active Substance: ENTACAPONE
     Dosage: 3 PER 1 DAY
     Route: 048
  3. MADOPAR [Concomitant]
     Active Substance: BENSERAZIDE HYDROCHLORIDE\LEVODOPA
     Dosage: 3 PER 1 DAY
     Route: 048
  4. MAGMITT [Concomitant]
     Active Substance: MAGNESIUM OXIDE
     Dosage: 3 PER 1 DAY
     Route: 048
  5. TRAMCET [Suspect]
     Active Substance: ACETAMINOPHEN\TRAMADOL
     Indication: PRODUCT USED FOR UNKNOWN INDICATION
     Dosage: 1 DOSE TWICE A DAY
     Route: 048
     Dates: start: 20140310, end: 20140530
  6. GASTER [Concomitant]
     Active Substance: FAMOTIDINE
     Dosage: 1 PER 1 DAY
     Route: 048
  7. GASCON [Concomitant]
     Active Substance: DIMETHICONE
     Dosage: 3 PER 1 DAY
     Route: 048
  8. SYMMETREL [Concomitant]
     Active Substance: AMANTADINE HYDROCHLORIDE
     Dosage: 1 PER 1 DAY
     Route: 048

REACTIONS (1)
  - Liver disorder [Unknown]

NARRATIVE: CASE EVENT DATE: 20140530
